FAERS Safety Report 10007418 (Version 1)
Quarter: 2014Q1

REPORT INFORMATION
  Report Type: Spontaneous
  Country: LB (occurrence: None)
  Receive Date: 20140311
  Receipt Date: 20140311
  Transmission Date: 20141002
  Serious: Yes (Other)
  Sender: FDA-Public Use
  Company Number: 20140113

PATIENT
  Age: 59 Year
  Sex: Male

DRUGS (12)
  1. GLYCOPYRROLATE INJECTION [Suspect]
     Indication: ANAESTHESIA REVERSAL
     Dosage: 0.01 MG/KG (0.9MG)
  2. NEOSTIGMINE (PROSTIGMINE) [Concomitant]
  3. MIDAZOLAM (DORMICOM) [Concomitant]
  4. FENTANYL [Concomitant]
  5. PROPOFOL(DIPRIVAN; FRENIOUS KABI, GERMANY) [Concomitant]
  6. ROCURONIUM [Concomitant]
  7. CISATRACURIUM [Concomitant]
  8. MIDAZOLAM [Concomitant]
  9. XYLOCAINE [Concomitant]
  10. DEXAMETHASONE [Concomitant]
  11. REMIFENTANIL [Concomitant]
  12. REMIFENTANIL [Concomitant]

REACTIONS (2)
  - Angle closure glaucoma [None]
  - Angle closure glaucoma [None]
